FAERS Safety Report 10519102 (Version 1)
Quarter: 2014Q4

REPORT INFORMATION
  Report Type: Spontaneous
  Country: US (occurrence: None)
  Receive Date: 20141014
  Receipt Date: 20141014
  Transmission Date: 20150528
  Serious: Yes (Other)
  Sender: FDA-Public Use
  Company Number: None

PATIENT
  Age: 76 Year
  Sex: Female
  Weight: 103 kg

DRUGS (12)
  1. ATENOLOL (TENORMIN) [Concomitant]
  2. FUROSEMIDE (LASIX) [Concomitant]
  3. LEVOTHYROXINE [Concomitant]
     Active Substance: LEVOTHYROXINE
  4. B COMPLEX VITAMINS (VITAMIN B COMPLEX) TABLET [Concomitant]
  5. LOSARTAN (COZAAR) [Concomitant]
  6. LOVASTATIN (MEVACOR) [Concomitant]
  7. VITAMIN D3, CHOLECALCIFEROL [Concomitant]
  8. METFORMIN (GLUCOPHAGE XR) [Concomitant]
  9. ALBUTEROL HFA (ALBUTEROL, VENTOLIN BRAND,) INHALER [Concomitant]
  10. XARELTO [Suspect]
     Active Substance: RIVAROXABAN
     Indication: ATRIAL FIBRILLATION
     Dosage: 1 TABLET, QD, ORAL
     Route: 048
     Dates: start: 20140908, end: 20141008
  11. TYLENOL [Concomitant]
     Active Substance: ACETAMINOPHEN
  12. BLOOD GLUCOSE TEST STRIP (FREESTYLE) [Concomitant]

REACTIONS (1)
  - Haemarthrosis [None]

NARRATIVE: CASE EVENT DATE: 20141009
